FAERS Safety Report 7119540-X (Version None)
Quarter: 2010Q4

REPORT INFORMATION
  Report Type: 
  Country: None (occurrence: None)
  Receive Date: 20101123
  Receipt Date: 20101118
  Transmission Date: 20110411
  Serious: Yes (Other)
  Sender: FDA-Public Use
  Company Number: JP-AMGEN-KDC415680

PATIENT

DRUGS (2)
  1. DENOSUMAB [Suspect]
     Indication: METASTASES TO BONE
     Dosage: UNK UNK, UNK
  2. CAPECITABINE [Concomitant]
     Dosage: UNK UNK, UNK
     Dates: start: 20090317

REACTIONS (1)
  - ALVEOLAR OSTEITIS [None]
